FAERS Safety Report 22111137 (Version 2)
Quarter: 2023Q2

REPORT INFORMATION
  Report Type: Report from Study
  Country: US (occurrence: US)
  Receive Date: 20230317
  Receipt Date: 20230404
  Transmission Date: 20230722
  Serious: No
  Sender: FDA-Public Use
  Company Number: US-BIOGEN-2023BI01192004

PATIENT
  Age: 79 Year
  Sex: Male
  Weight: 79.3 kg

DRUGS (17)
  1. ADUCANUMAB [Suspect]
     Active Substance: ADUCANUMAB
     Indication: Dementia Alzheimer^s type
     Route: 050
     Dates: start: 20220728, end: 20220728
  2. ADUCANUMAB [Suspect]
     Active Substance: ADUCANUMAB
     Route: 050
     Dates: start: 20220825, end: 20220825
  3. ADUCANUMAB [Suspect]
     Active Substance: ADUCANUMAB
     Route: 050
     Dates: start: 20220921, end: 20220921
  4. ADUCANUMAB [Suspect]
     Active Substance: ADUCANUMAB
     Route: 050
     Dates: start: 20221017, end: 20221017
  5. ADUCANUMAB [Suspect]
     Active Substance: ADUCANUMAB
     Route: 050
     Dates: start: 20221116, end: 20221116
  6. ADUCANUMAB [Suspect]
     Active Substance: ADUCANUMAB
     Route: 050
     Dates: start: 20221216, end: 20221216
  7. ADUCANUMAB [Suspect]
     Active Substance: ADUCANUMAB
     Route: 050
     Dates: start: 20230109
  8. AMYVID [Suspect]
     Active Substance: FLORBETAPIR F-18
     Indication: Positron emission tomogram
     Route: 050
     Dates: start: 20220708, end: 20220708
  9. FLORQUINITAU [Suspect]
     Active Substance: FLORQUINITAU
     Indication: Positron emission tomogram
     Route: 050
     Dates: start: 20220720, end: 20220720
  10. ATORVASTATIN [Concomitant]
     Active Substance: ATORVASTATIN
     Indication: Hyperlipidaemia
     Route: 050
     Dates: start: 2018
  11. COENZYME Q10 [Concomitant]
     Active Substance: DIETARY SUPPLEMENT\UBIDECARENONE
     Indication: Cardiovascular event prophylaxis
     Route: 050
     Dates: start: 2010
  12. EZETIMIBE [Concomitant]
     Active Substance: EZETIMIBE
     Indication: Hyperlipidaemia
     Route: 050
     Dates: start: 2018
  13. METOPROLOL [Concomitant]
     Active Substance: METOPROLOL
     Indication: Hypertension
     Route: 050
     Dates: start: 2010
  14. OMEGA-3 ACIDS [Concomitant]
     Active Substance: OMEGA-3 FATTY ACIDS
     Indication: Supplementation therapy
     Route: 050
     Dates: start: 2017
  15. VITAMIN D3 [Concomitant]
     Active Substance: CHOLECALCIFEROL
     Indication: Supplementation therapy
     Dosage: 1 TABLET
     Route: 050
     Dates: start: 2018
  16. MINERALS\VITAMINS [Concomitant]
     Active Substance: MINERALS\VITAMINS
     Indication: Supplementation therapy
     Dosage: 2 CAPSULES
     Route: 050
     Dates: start: 2019
  17. ASPIRIN [Concomitant]
     Active Substance: ASPIRIN
     Indication: Coronary artery disease
     Route: 050
     Dates: start: 2010

REACTIONS (2)
  - Amyloid related imaging abnormality-oedema/effusion [Not Recovered/Not Resolved]
  - Superficial siderosis of central nervous system [Not Recovered/Not Resolved]

NARRATIVE: CASE EVENT DATE: 20230222
